FAERS Safety Report 20838406 (Version 1)
Quarter: 2022Q2

REPORT INFORMATION
  Report Type: Spontaneous
  Country: US (occurrence: None)
  Receive Date: 20220516
  Receipt Date: 20220516
  Transmission Date: 20220721
  Serious: Yes (Hospitalization)
  Sender: FDA-Public Use
  Company Number: None

PATIENT
  Age: 15 Year
  Sex: Male

DRUGS (1)
  1. ABATACEPT [Suspect]
     Active Substance: ABATACEPT
     Dosage: OTHER FREQUENCY : 4 DOSES PRIOR;?
     Route: 042

REACTIONS (3)
  - Pyrexia [None]
  - Sinusitis [None]
  - Bone marrow transplant [None]

NARRATIVE: CASE EVENT DATE: 20220423
